FAERS Safety Report 7703544-X (Version None)
Quarter: 2011Q3

REPORT INFORMATION
  Report Type: 
  Country: None (occurrence: None)
  Receive Date: 20110823
  Receipt Date: 20110818
  Transmission Date: 20111222
  Serious: Yes (Other)
  Sender: FDA-Public Use
  Company Number: US-SANOFI-AVENTIS-2011SA046604

PATIENT
  Age: 74 Year
  Sex: Male
  Weight: 93 kg

DRUGS (4)
  1. MULTAQ [Suspect]
     Indication: CARDIOVERSION
     Route: 048
     Dates: start: 20100825
  2. MULTAQ [Suspect]
     Route: 048
  3. MULTAQ [Suspect]
     Route: 048
     Dates: start: 20100825
  4. MULTAQ [Suspect]
     Route: 048

REACTIONS (3)
  - IDIOPATHIC PULMONARY FIBROSIS [None]
  - DYSPNOEA [None]
  - ATRIAL FIBRILLATION [None]
